FAERS Safety Report 6524814-7 (Version None)
Quarter: 2010Q1

REPORT INFORMATION
  Report Type: 
  Country: None (occurrence: None)
  Receive Date: 20100104
  Receipt Date: 20091228
  Transmission Date: 20100710
  Serious: Yes (Death, Hospitalization)
  Sender: FDA-Public Use
  Company Number: FR-ASTRAZENECA-2009SE33825

PATIENT
  Age: 19577 Day
  Sex: Male

DRUGS (4)
  1. NEXIUM [Suspect]
     Route: 048
     Dates: start: 20090926
  2. KEPPRA [Suspect]
     Indication: PARTIAL SEIZURES
     Route: 048
     Dates: start: 20090926, end: 20091106
  3. MEDROL [Suspect]
     Route: 048
     Dates: start: 20090926
  4. PARACETAMOL [Suspect]
     Route: 048
     Dates: start: 20090926

REACTIONS (1)
  - THROMBOCYTOPENIA [None]
